FAERS Safety Report 6526723-6 (Version None)
Quarter: 2010Q1

REPORT INFORMATION
  Report Type: 
  Country: None (occurrence: None)
  Receive Date: 20100104
  Receipt Date: 20100104
  Transmission Date: 20100710
  Serious: Yes (Hospitalization)
  Sender: FDA-Public Use
  Company Number: None

PATIENT
  Age: 51 Year
  Sex: Male

DRUGS (4)
  1. AMEVIVE [Suspect]
     Indication: PSORIASIS
     Dosage: 15MG QWEEK IM
     Route: 030
     Dates: start: 20090903, end: 20091026
  2. CLOBEX SPRAY [Concomitant]
  3. TRIAMCINOLONE  OINTMENT [Concomitant]
  4. DOVONEX [Concomitant]

REACTIONS (8)
  - ACUTE TONSILLITIS [None]
  - DYSPHAGIA [None]
  - FATIGUE [None]
  - MALAISE [None]
  - MYALGIA [None]
  - ODYNOPHAGIA [None]
  - PERITONSILLAR ABSCESS [None]
  - PHARYNGITIS [None]
